FAERS Safety Report 4717131-9 (Version None)
Quarter: 2005Q3

REPORT INFORMATION
  Report Type: 
  Country: None (occurrence: None)
  Receive Date: 20050719
  Receipt Date: 20050421
  Transmission Date: 20060218
  Serious: Yes (Disabling)
  Sender: FDA-Public Use
  Company Number: US-GLAXOSMITHKLINE-A0555241A

PATIENT
  Age: 50 Year
  Sex: Female

DRUGS (8)
  1. LAMICTAL [Suspect]
     Indication: GLIOBLASTOMA
     Route: 048
     Dates: start: 20050210, end: 20050101
  2. TEGRETOL [Concomitant]
  3. TOPROL-XL [Concomitant]
  4. SYNTHROID [Concomitant]
  5. OXYCONTIN [Concomitant]
  6. OXYCODONE HCL [Concomitant]
  7. DEXAMETHASONE [Concomitant]
  8. SENNA [Concomitant]

REACTIONS (3)
  - DYSPHAGIA [None]
  - GENERAL PHYSICAL HEALTH DETERIORATION [None]
  - LETHARGY [None]
